FAERS Safety Report 4655097-0 (Version None)
Quarter: 2005Q2

REPORT INFORMATION
  Report Type: 
  Country: None (occurrence: None)
  Receive Date: 20050505
  Receipt Date: 20050207
  Transmission Date: 20051028
  Serious: Yes (Life-Threatening)
  Sender: FDA-Public Use
  Company Number: 805#1#2005-00005

PATIENT
  Age: 60 Year
  Sex: Female

DRUGS (4)
  1. ALPROSTADIL [Suspect]
     Indication: DIABETIC GANGRENE
     Dosage: 120 MCG INTRAVENOUS DRIP; 60 MCG INTRAVENOUS DRIP
     Route: 041
     Dates: start: 20050114, end: 20050128
  2. ALPROSTADIL [Suspect]
     Indication: DIABETIC GANGRENE
     Dosage: 120 MCG INTRAVENOUS DRIP; 60 MCG INTRAVENOUS DRIP
     Route: 041
     Dates: start: 20050129, end: 20050129
  3. DIGESTIVE-ENZYME-PREPARATION (ENZYME NOS) [Concomitant]
  4. CEFAZOLIN SODIUM [Concomitant]

REACTIONS (5)
  - CARDIOMEGALY [None]
  - LEFT VENTRICULAR FAILURE [None]
  - PLEURAL EFFUSION [None]
  - PNEUMONIA [None]
  - PULMONARY OEDEMA [None]
